FAERS Safety Report 15020391 (Version 1)
Quarter: 2018Q2

REPORT INFORMATION
  Report Type: Spontaneous
  Country: JP (occurrence: JP)
  Receive Date: 20180618
  Receipt Date: 20180618
  Transmission Date: 20180711
  Serious: Yes (Other)
  Sender: FDA-Public Use
  Company Number: JP-ROCHE-2138352

PATIENT
  Sex: Male

DRUGS (1)
  1. OMALIZUMAB. [Suspect]
     Active Substance: OMALIZUMAB
     Indication: ASTHMA
     Dosage: UNK
     Route: 058

REACTIONS (5)
  - Dysphonia [Unknown]
  - Pharyngeal lesion [Unknown]
  - Cryptococcosis [Unknown]
  - Bronchial disorder [Unknown]
  - Tracheal disorder [Unknown]
